FAERS Safety Report 25551362 (Version 1)
Quarter: 2025Q3

REPORT INFORMATION
  Report Type: Spontaneous
  Country: CA (occurrence: CA)
  Receive Date: 20250714
  Receipt Date: 20250714
  Transmission Date: 20251020
  Serious: Yes (Disabling)
  Sender: TEVA
  Company Number: CA-TEVA-VS-3349742

PATIENT
  Age: 31 Year
  Sex: Female
  Weight: 62.142 kg

DRUGS (1)
  1. PAROXETINE [Suspect]
     Active Substance: PAROXETINE
     Indication: Depression
     Route: 048

REACTIONS (4)
  - Withdrawal syndrome [Recovering/Resolving]
  - Maternal exposure during pregnancy [Recovering/Resolving]
  - Feeling abnormal [Recovering/Resolving]
  - Sensory disturbance [Recovering/Resolving]
